FAERS Safety Report 5453503-5 (Version None)
Quarter: 2007Q3

REPORT INFORMATION
  Report Type: 
  Country: None (occurrence: None)
  Receive Date: 20070913
  Receipt Date: 20070904
  Transmission Date: 20080115
  Serious: Yes (Hospitalization)
  Sender: FDA-Public Use
  Company Number: 2007-03006

PATIENT
  Age: 60 Year
  Sex: Male
  Weight: 94.5 kg

DRUGS (17)
  1. ALLOPURINOL [Suspect]
     Indication: GOUT
     Dosage: 1 TABLET, DAILY X 36 DAYS, ORAL
     Route: 048
     Dates: start: 20070417, end: 20070529
  2. INSULIN GLARGINE [Suspect]
     Indication: DIABETES MELLITUS
     Dosage: 50 U , QPM, SUBCUTANEOUS, 50 U , QPM, SUBCUTANEOUS
     Route: 058
     Dates: start: 20070520, end: 20070527
  3. INSULIN GLARGINE [Suspect]
     Indication: DIABETES MELLITUS
     Dosage: 50 U , QPM, SUBCUTANEOUS, 50 U , QPM, SUBCUTANEOUS
     Route: 058
     Dates: start: 20060601
  4. INSULIN GLARGINE [Suspect]
     Indication: DIABETES MELLITUS
     Dosage: 50 U , QPM, SUBCUTANEOUS, 50 U , QPM, SUBCUTANEOUS
     Route: 058
     Dates: start: 20070601
  5. LYRICA [Concomitant]
  6. AVODART [Concomitant]
  7. APIDRA [Suspect]
     Indication: DIABETES MELLITUS
     Dosage: 30 U , QPM, SUBCUTANEOUS
     Route: 058
     Dates: start: 20060601
  8. SOCIUM BICARBONATE (SODIUM BICARBONATE) TABLET [Concomitant]
  9. RENAGEL (SEERLAMER HYDRICHLORIDE) [Concomitant]
  10. ACIPHEX (RABERPRAZOLE SODIUM) [Concomitant]
  11. LOPID [Concomitant]
  12. LASIX [Concomitant]
  13. CLONIDINE [Concomitant]
  14. CONAZEPAM [Concomitant]
  15. ATENOLOL [Concomitant]
  16. MULTIPLE EYE MEDICATIONS [Concomitant]
  17. INSULIN, REGULAR (INSULIN) [Concomitant]

REACTIONS (4)
  - BLOOD URINE PRESENT [None]
  - DIARRHOEA [None]
  - DRUG HYPERSENSITIVITY [None]
  - WHITE BLOOD CELL COUNT DECREASED [None]
